FAERS Safety Report 13718570 (Version 1)
Quarter: 2017Q3

REPORT INFORMATION
  Report Type: Spontaneous
  Country: FR (occurrence: FR)
  Receive Date: 20170705
  Receipt Date: 20170705
  Transmission Date: 20171127
  Serious: Yes (Hospitalization, Other)
  Sender: FDA-Public Use
  Company Number: FR-INDIVIOR LIMITED-INDV-102957-2017

PATIENT
  Age: 48 Year
  Sex: Male

DRUGS (1)
  1. SUBUTEX [Suspect]
     Active Substance: BUPRENORPHINE HYDROCHLORIDE
     Indication: PRODUCT USED FOR UNKNOWN INDICATION
     Dosage: 5 TABLETS OF NON SPECIFIED DOSE (1 SINGLE TAKE)
     Route: 060

REACTIONS (5)
  - Somnolence [Recovered/Resolved]
  - Dehydration [Recovered/Resolved]
  - Renal tubular necrosis [Unknown]
  - Toxicity to various agents [Unknown]
  - Substance abuse [Unknown]
